FAERS Safety Report 21353886 (Version 1)
Quarter: 2022Q3

REPORT INFORMATION
  Report Type: Spontaneous
  Country: CN (occurrence: CN)
  Receive Date: 20220920
  Receipt Date: 20220920
  Transmission Date: 20221027
  Serious: Yes (Other)
  Sender: FDA-Public Use
  Company Number: CN-BAYER-2022A130293

PATIENT
  Age: 77 Year
  Sex: Male
  Weight: 70 kg

DRUGS (2)
  1. MOMETASONE FUROATE [Suspect]
     Active Substance: MOMETASONE FUROATE
     Indication: Eczema infected
     Dosage: 0.1 MILLIGRAMS (MG), QD
     Route: 061
     Dates: start: 20020809, end: 20220908
  2. MUCOPOLYSACCHARIDE POLYSULFATE [Concomitant]
     Dosage: UNK UNK, TID
     Route: 061
     Dates: start: 20220910

REACTIONS (4)
  - Ecchymosis [Recovering/Resolving]
  - Scab [Unknown]
  - Skin atrophy [Unknown]
  - Pain of skin [Unknown]

NARRATIVE: CASE EVENT DATE: 20220911
